FAERS Safety Report 9215758 (Version 1)
Quarter: 2013Q2

REPORT INFORMATION
  Report Type: Spontaneous
  Country: JP (occurrence: None)
  Receive Date: 20130404
  Receipt Date: 20130404
  Transmission Date: 20140414
  Serious: Yes (Death)
  Sender: FDA-Public Use
  Company Number: TCI2013A01788

PATIENT
  Age: 70 Year
  Sex: Male

DRUGS (1)
  1. TAKEPRON [Suspect]
     Route: 048
     Dates: start: 201106, end: 201107

REACTIONS (2)
  - Disseminated intravascular coagulation [None]
  - Toxic epidermal necrolysis [None]
